FAERS Safety Report 8554000-0 (Version None)
Quarter: 2012Q3

REPORT INFORMATION
  Report Type: 
  Country: None (occurrence: None)
  Receive Date: 20120731
  Receipt Date: 20120720
  Transmission Date: 20120928
  Serious: Yes (Other)
  Sender: FDA-Public Use
  Company Number: FR-TEVA-307939ISR

PATIENT
  Sex: Female

DRUGS (4)
  1. PRAZEPAM [Concomitant]
  2. IODINATED RADIOCONTRAST AGENT (BRAND NAME NOT SPECIFIED) [Suspect]
     Indication: SCAN
     Dates: start: 20110901, end: 20110901
  3. COPAXONE [Suspect]
     Dosage: 20 MILLIGRAM;
     Route: 058
     Dates: start: 20110701
  4. SLEEPING DRUG (BRAND NAME NOT SPECIFIED) [Suspect]

REACTIONS (7)
  - IODINE ALLERGY [None]
  - ERYTHEMA [None]
  - ASTHMA [None]
  - MACULE [None]
  - DYSPNOEA [None]
  - RESPIRATORY DISORDER [None]
  - DRUG HYPERSENSITIVITY [None]
